FAERS Safety Report 19282343 (Version 2)
Quarter: 2021Q2

REPORT INFORMATION
  Report Type: Spontaneous
  Country: GB (occurrence: GB)
  Receive Date: 20210520
  Receipt Date: 20210527
  Transmission Date: 20210717
  Serious: Yes (Other)
  Sender: FDA-Public Use
  Company Number: NVSC2021GB110221

PATIENT
  Sex: Male

DRUGS (12)
  1. DIHYDROCODEINE [Interacting]
     Active Substance: DIHYDROCODEINE
     Indication: PRODUCT USED FOR UNKNOWN INDICATION
     Dosage: UNK
     Route: 065
  2. DIHYDROCODEINE [Interacting]
     Active Substance: DIHYDROCODEINE
     Dosage: UNK
     Route: 065
  3. TETRACYCLINE HYDROCHLORIDE. [Interacting]
     Active Substance: TETRACYCLINE HYDROCHLORIDE
     Indication: PRODUCT USED FOR UNKNOWN INDICATION
     Dosage: UNK
     Route: 065
  4. EPILIM [Suspect]
     Active Substance: VALPROATE SODIUM
     Indication: EPILEPSY
     Dosage: UNK
     Route: 065
  5. PAROXETINE. [Concomitant]
     Active Substance: PAROXETINE
     Indication: PRODUCT USED FOR UNKNOWN INDICATION
     Dosage: UNK
     Route: 065
  6. TRAMADOL. [Concomitant]
     Active Substance: TRAMADOL
     Indication: PRODUCT USED FOR UNKNOWN INDICATION
     Dosage: UNK
     Route: 065
  7. VALPROATE SODIUM. [Concomitant]
     Active Substance: VALPROATE SODIUM
     Indication: PRODUCT USED FOR UNKNOWN INDICATION
     Dosage: UNK
     Route: 065
  8. DICLOFENAC [Suspect]
     Active Substance: DICLOFENAC
     Indication: PRODUCT USED FOR UNKNOWN INDICATION
     Dosage: UNK
     Route: 065
  9. EPILIM [Suspect]
     Active Substance: VALPROATE SODIUM
     Dosage: 245 DF
     Route: 065
  10. TETRACYCLINE HYDROCHLORIDE. [Interacting]
     Active Substance: TETRACYCLINE HYDROCHLORIDE
     Dosage: UNK
     Route: 065
  11. GABAPENTIN. [Concomitant]
     Active Substance: GABAPENTIN
     Indication: NEURALGIA
     Dosage: UNK
     Route: 065
  12. GABAPENTIN. [Concomitant]
     Active Substance: GABAPENTIN
     Indication: INTERVERTEBRAL DISC DISPLACEMENT
     Dosage: UNK
     Route: 065

REACTIONS (13)
  - Blood urine present [Unknown]
  - Product dispensing error [Unknown]
  - Syncope [Unknown]
  - Drug interaction [Unknown]
  - Renal disorder [Unknown]
  - Vomiting [Unknown]
  - Dizziness [Unknown]
  - Swelling face [Unknown]
  - Drug hypersensitivity [Unknown]
  - Seizure [Unknown]
  - Anaphylactic shock [Unknown]
  - Pain [Unknown]
  - Nausea [Unknown]
